FAERS Safety Report 24359749 (Version 1)
Quarter: 2024Q3

REPORT INFORMATION
  Report Type: Report from Study
  Country: US (occurrence: US)
  Receive Date: 20240924
  Receipt Date: 20240924
  Transmission Date: 20241017
  Serious: Yes (Hospitalization, Other)
  Sender: ABBVIE
  Company Number: US-ABBVIE-5933630

PATIENT
  Age: 42 Year
  Sex: Female

DRUGS (1)
  1. QULIPTA [Suspect]
     Active Substance: ATOGEPANT
     Indication: Product used for unknown indication
     Route: 048
     Dates: start: 20220504

REACTIONS (3)
  - Sepsis [Recovering/Resolving]
  - Staphylococcal infection [Recovering/Resolving]
  - Lymphadenopathy [Unknown]

NARRATIVE: CASE EVENT DATE: 20240404
